FAERS Safety Report 14918733 (Version 2)
Quarter: 2018Q2

REPORT INFORMATION
  Report Type: Spontaneous
  Country: US (occurrence: US)
  Receive Date: 20180521
  Receipt Date: 20180523
  Transmission Date: 20180711
  Serious: Yes (Disabling, Other)
  Sender: FDA-Public Use
  Company Number: US-PFIZER INC-2018206614

PATIENT
  Age: 59 Year
  Sex: Male
  Weight: 114.7 kg

DRUGS (9)
  1. ZOSYN [Suspect]
     Active Substance: PIPERACILLIN SODIUM\TAZOBACTAM SODIUM
     Indication: OSTEOMYELITIS
  2. FUROSEMIDE. [Concomitant]
     Active Substance: FUROSEMIDE
     Indication: HEPATIC FAILURE
     Dosage: 20 MG, 1X/DAY  (AT BEDTIME)
     Route: 048
  3. ZOSYN [Suspect]
     Active Substance: PIPERACILLIN SODIUM\TAZOBACTAM SODIUM
     Indication: LOCALISED INFECTION
     Dosage: 3.375 G, 3X/DAY (EVERY 8 HOURS WITH 4 HOUR EXTENDED INFUSION PERIOD)
     Route: 041
     Dates: start: 20180418, end: 20180422
  4. FUROSEMIDE. [Concomitant]
     Active Substance: FUROSEMIDE
     Indication: ASCITES
     Dosage: 40 MG, 1X/DAY  (AT BEDTIME)
     Route: 048
  5. ZOSYN [Suspect]
     Active Substance: PIPERACILLIN SODIUM\TAZOBACTAM SODIUM
     Indication: ABSCESS LIMB
  6. AUGMENTIN [Concomitant]
     Active Substance: AMOXICILLIN\CLAVULANATE POTASSIUM
     Indication: LOCALISED INFECTION
  7. VANCOMYCIN HCL [Suspect]
     Active Substance: VANCOMYCIN HYDROCHLORIDE
     Dosage: 1.5 G, 2X/DAY (EVERY 12 HOURS)
     Route: 041
     Dates: start: 20180418, end: 20180423
  8. VANCOMYCIN HCL [Suspect]
     Active Substance: VANCOMYCIN HYDROCHLORIDE
     Dosage: 1 G, AS NEEDED (PRN)
     Dates: start: 20180422, end: 20180423
  9. AUGMENTIN [Concomitant]
     Active Substance: AMOXICILLIN\CLAVULANATE POTASSIUM
     Indication: OSTEOMYELITIS
     Dosage: 1 DF, 2X/DAY
     Route: 048
     Dates: start: 20180417, end: 20180418

REACTIONS (2)
  - Acute kidney injury [Recovering/Resolving]
  - Nephropathy toxic [Recovering/Resolving]

NARRATIVE: CASE EVENT DATE: 20180422
